FAERS Safety Report 7057812-8 (Version None)
Quarter: 2010Q4

REPORT INFORMATION
  Report Type: 
  Country: None (occurrence: None)
  Receive Date: 20101022
  Receipt Date: 20101011
  Transmission Date: 20110411
  Serious: Yes (Other)
  Sender: FDA-Public Use
  Company Number: US-PFIZER INC-2010099759

PATIENT
  Sex: Male

DRUGS (9)
  1. CHANTIX [Suspect]
     Indication: SMOKING CESSATION THERAPY
     Dosage: STARTER PACK, UNK
     Dates: start: 20060801, end: 20061001
  2. SPIRIVA [Concomitant]
     Indication: CHRONIC OBSTRUCTIVE PULMONARY DISEASE
     Dosage: UNK
     Dates: start: 20060801, end: 20061101
  3. SPIRIVA [Concomitant]
     Indication: BRONCHITIS
  4. BENICAR [Concomitant]
     Indication: HYPERTENSION
     Dosage: UNK
     Dates: start: 20021201, end: 20081101
  5. BENICAR [Concomitant]
     Indication: METABOLIC SYNDROME
  6. LIPITOR [Concomitant]
     Indication: HYPERTENSION
     Dosage: UNK
     Dates: start: 20040801
  7. AMMONIUM LACTATE CREAM 12% [Concomitant]
     Indication: SKIN DISORDER
     Dosage: UNK
     Dates: start: 20021201, end: 20100101
  8. ANDROGEL [Concomitant]
     Indication: BLOOD TESTOSTERONE DECREASED
     Dosage: UNK
     Dates: start: 20040401, end: 20070801
  9. ANDROGEL [Concomitant]
     Indication: HYPOGONADISM

REACTIONS (7)
  - ANXIETY [None]
  - BIPOLAR II DISORDER [None]
  - MAJOR DEPRESSION [None]
  - MENTAL DISORDER [None]
  - MORBID THOUGHTS [None]
  - SCHIZOID PERSONALITY DISORDER [None]
  - SUICIDAL IDEATION [None]
